FAERS Safety Report 12862361 (Version 1)
Quarter: 2016Q4

REPORT INFORMATION
  Report Type: Spontaneous
  Country: US (occurrence: US)
  Receive Date: 20161018
  Receipt Date: 20161018
  Transmission Date: 20170207
  Serious: Yes (Disabling)
  Sender: FDA-Public Use
  Company Number: None

PATIENT
  Age: 39 Year
  Sex: Female
  Weight: 75.15 kg

DRUGS (2)
  1. CIPROFLOXACIN. [Suspect]
     Active Substance: CIPROFLOXACIN
     Indication: ABDOMINAL PAIN
     Dosage: INTRAVENOUS (NOT OTHERWISED SPECIFIED)
     Route: 042
     Dates: start: 20151129
  2. ZYRTEC [Concomitant]
     Active Substance: CETIRIZINE HYDROCHLORIDE

REACTIONS (25)
  - Costochondritis [None]
  - Fatigue [None]
  - Myalgia [None]
  - Paraesthesia [None]
  - Muscle contractions involuntary [None]
  - Insomnia [None]
  - Influenza like illness [None]
  - Nerve injury [None]
  - Palpitations [None]
  - Oesophageal spasm [None]
  - Temperature intolerance [None]
  - Neuropathy peripheral [None]
  - Feeling abnormal [None]
  - Anxiety [None]
  - Headache [None]
  - Heart rate irregular [None]
  - Tendonitis [None]
  - Postural orthostatic tachycardia syndrome [None]
  - Autonomic nervous system imbalance [None]
  - Impaired gastric emptying [None]
  - Orthostatic hypotension [None]
  - Chills [None]
  - Arthralgia [None]
  - Tremor [None]
  - Dizziness [None]
